FAERS Safety Report 11863977 (Version 1)
Quarter: 2015Q4

REPORT INFORMATION
  Report Type: Spontaneous
  Country: US (occurrence: US)
  Receive Date: 20151223
  Receipt Date: 20151223
  Transmission Date: 20160305
  Serious: No
  Sender: FDA-Public Use
  Company Number: US-GLAXOSMITHKLINE-US2015179438

PATIENT

DRUGS (1)
  1. FLONASE [Suspect]
     Active Substance: FLUTICASONE PROPIONATE
     Indication: PRODUCT USED FOR UNKNOWN INDICATION
     Dosage: UNK

REACTIONS (6)
  - Oropharyngeal pain [Recovering/Resolving]
  - Sinus disorder [Recovering/Resolving]
  - Odynophagia [Recovering/Resolving]
  - Sinus headache [Recovering/Resolving]
  - Throat irritation [Recovering/Resolving]
  - Productive cough [Not Recovered/Not Resolved]
